FAERS Safety Report 4500267-5 (Version None)
Quarter: 2004Q4

REPORT INFORMATION
  Report Type: 
  Country: None (occurrence: None)
  Receive Date: 20041109
  Receipt Date: 20041025
  Transmission Date: 20050328
  Serious: Yes (Other)
  Sender: FDA-Public Use
  Company Number: 2004241220US

PATIENT
  Age: 74 Year
  Sex: Male

DRUGS (1)
  1. DELTASONE [Suspect]
     Indication: ANAEMIA HAEMOLYTIC AUTOIMMUNE

REACTIONS (1)
  - CYTOMEGALOVIRUS CHORIORETINITIS [None]
